FAERS Safety Report 10417050 (Version 1)
Quarter: 2014Q3

REPORT INFORMATION
  Report Type: Spontaneous
  Country: FR (occurrence: None)
  Receive Date: 20140826
  Receipt Date: 20140826
  Transmission Date: 20150326
  Serious: Yes (Hospitalization, Disabling)
  Sender: FDA-Public Use
  Company Number: 7314532

PATIENT
  Age: 79 Year
  Sex: Male

DRUGS (5)
  1. LEVOTHYROX 125 [Suspect]
     Active Substance: LEVOTHYROXINE
     Indication: PRODUCT USED FOR UNKNOWN INDICATION
     Dosage: SINCE 4 OR 5 YEARS
  2. RABEPRAZOLE [Concomitant]
     Active Substance: RABEPRAZOLE
  3. REPAGLINIDE. [Concomitant]
     Active Substance: REPAGLINIDE
  4. PARACETAMOL [Concomitant]
     Active Substance: ACETAMINOPHEN
  5. FINASTERIDE. [Concomitant]
     Active Substance: FINASTERIDE

REACTIONS (8)
  - Hallucination, visual [None]
  - Dysphagia [None]
  - Fatigue [None]
  - Neurological eyelid disorder [None]
  - Diplopia [None]
  - Weight decreased [None]
  - Medical induction of coma [None]
  - Walking disability [None]

NARRATIVE: CASE EVENT DATE: 20140814
